FAERS Safety Report 9044621 (Version 2)
Quarter: 2013Q1

REPORT INFORMATION
  Report Type: Spontaneous
  Country: IT (occurrence: IT)
  Receive Date: 20130130
  Receipt Date: 20130222
  Transmission Date: 20140127
  Serious: Yes (Hospitalization)
  Sender: FDA-Public Use
  Company Number: IT-GILEAD-2013-0068651

PATIENT
  Age: 69 None
  Sex: Male

DRUGS (8)
  1. RANOLAZINE [Suspect]
     Indication: ANGINA PECTORIS
     Dosage: 500 MG, QD
     Route: 048
     Dates: start: 20121229, end: 20130102
  2. RANOLAZINE [Interacting]
     Dosage: 375 MG, QD
     Route: 048
     Dates: start: 20121227, end: 20121229
  3. INEGY [Interacting]
     Indication: HYPERCHOLESTEROLAEMIA
     Dosage: 10/20 MG, QD
     Route: 048
     Dates: start: 20030101, end: 20130102
  4. ALLOPURINOL [Concomitant]
     Route: 048
  5. METOPROLOL TARTRATE [Concomitant]
     Route: 048
  6. TRIATEC                            /00885601/ [Concomitant]
     Route: 048
  7. CARDIOASPIRIN [Concomitant]
     Route: 048
  8. SEACOR [Concomitant]
     Route: 048

REACTIONS (6)
  - Muscle spasms [Recovered/Resolved]
  - Rhabdomyolysis [Recovered/Resolved]
  - Hepatic enzyme increased [Recovered/Resolved]
  - Drug interaction [Recovered/Resolved]
  - Asthenia [Recovered/Resolved]
  - Tremor [Recovered/Resolved]
